FAERS Safety Report 12286590 (Version 1)
Quarter: 2016Q2

REPORT INFORMATION
  Report Type: Spontaneous
  Country: JP (occurrence: JP)
  Receive Date: 20160420
  Receipt Date: 20160420
  Transmission Date: 20160815
  Serious: Yes (Hospitalization)
  Sender: FDA-Public Use
  Company Number: JP-009507513-1603JPN012220

PATIENT
  Age: 47 Year
  Sex: Female

DRUGS (2)
  1. DESOGESTREL AND ETHINYL ESTRADIOL [Suspect]
     Active Substance: DESOGESTREL\ETHINYL ESTRADIOL
     Indication: ADENOMYOSIS
     Dosage: DAILY DOSE UNKNOWN
     Route: 048
  2. LOSARTAN POTASSIUM. [Concomitant]
     Active Substance: LOSARTAN POTASSIUM
     Dosage: DAILY DOSE UNKNOWN
     Route: 065

REACTIONS (3)
  - Vocal cord polyp [Unknown]
  - Medication error [Unknown]
  - Product use issue [Unknown]
